FAERS Safety Report 7451388-9 (Version None)
Quarter: 2011Q2

REPORT INFORMATION
  Report Type: 
  Country: None (occurrence: None)
  Receive Date: 20110422
  Receipt Date: 20110415
  Transmission Date: 20111010
  Serious: Yes (Life-Threatening, Hospitalization)
  Sender: FDA-Public Use
  Company Number: WAES 0912USA02304

PATIENT
  Age: 71 Year
  Sex: Male
  Weight: 87.9978 kg

DRUGS (20)
  1. COZAAR [Concomitant]
  2. NEXIUM [Concomitant]
  3. COLESTIPOL HYDROCHLORIDE [Concomitant]
  4. WARFARIN SODIUM [Concomitant]
  5. SITAGLIPTIN PHOSPHATE [Suspect]
     Indication: TYPE 2 DIABETES MELLITUS
     Dosage: 50 MG, DAILY, PO
     Route: 048
     Dates: start: 20080918, end: 20081201
  6. SITAGLIPTIN PHOSPHATE [Suspect]
     Indication: TYPE 2 DIABETES MELLITUS
     Dosage: 50 MG, DAILY, PO
     Route: 048
     Dates: start: 20080512, end: 20080913
  7. ALBUTEROL [Concomitant]
  8. ADVAIR DISKUS 100/50 [Concomitant]
  9. GABAPENTIN [Concomitant]
  10. PLACEBO [Suspect]
     Indication: TYPE 2 DIABETES MELLITUS
     Dosage: 0.5, 1, 1.5, 2,3  TAB, DAILY, PO
     Route: 048
     Dates: start: 20080624, end: 20080713
  11. PLACEBO [Suspect]
     Indication: TYPE 2 DIABETES MELLITUS
     Dosage: 0.5, 1, 1.5, 2,3  TAB, DAILY, PO
     Route: 048
     Dates: start: 20080714, end: 20080824
  12. PLACEBO [Suspect]
     Indication: TYPE 2 DIABETES MELLITUS
     Dosage: 0.5, 1, 1.5, 2,3  TAB, DAILY, PO
     Route: 048
     Dates: start: 20080918, end: 20081201
  13. PLACEBO [Suspect]
     Indication: TYPE 2 DIABETES MELLITUS
     Dosage: 0.5, 1, 1.5, 2,3  TAB, DAILY, PO
     Route: 048
     Dates: start: 20080607, end: 20080623
  14. PLACEBO [Suspect]
     Indication: TYPE 2 DIABETES MELLITUS
     Dosage: 0.5, 1, 1.5, 2,3  TAB, DAILY, PO
     Route: 048
     Dates: start: 20080512, end: 20080606
  15. PLACEBO [Suspect]
     Indication: TYPE 2 DIABETES MELLITUS
     Dosage: 0.5, 1, 1.5, 2,3  TAB, DAILY, PO
     Route: 048
     Dates: start: 20080825, end: 20080913
  16. INSPRA [Concomitant]
  17. POTASSIUM CHLORIDE [Concomitant]
  18. PLACEBO [Suspect]
     Dosage: 1.5 TAB, DAILY, PO
     Route: 048
     Dates: start: 20080422, end: 20080511
  19. PRAVASTATIN SODIUM [Concomitant]
  20. ZETIA [Concomitant]

REACTIONS (6)
  - RESPIRATORY DISTRESS [None]
  - GENERAL PHYSICAL HEALTH DETERIORATION [None]
  - PNEUMONIA ASPIRATION [None]
  - GUILLAIN-BARRE SYNDROME [None]
  - RESPIRATORY FAILURE [None]
  - SEPSIS [None]
